FAERS Safety Report 7603374-3 (Version None)
Quarter: 2011Q3

REPORT INFORMATION
  Report Type: 
  Country: None (occurrence: None)
  Receive Date: 20110712
  Receipt Date: 20110706
  Transmission Date: 20111222
  Serious: Yes (Death, Hospitalization)
  Sender: FDA-Public Use
  Company Number: PHHY2011DE55002

PATIENT
  Sex: Female
  Weight: 86 kg

DRUGS (12)
  1. BETA BLOCKING AGENTS [Concomitant]
     Dosage: UNK UKN, UNK
  2. HALDOL [Concomitant]
     Dosage: UNK DF, PRN
  3. RASILEZ HCT [Suspect]
     Indication: HYPERTENSION
     Dosage: 320MG OF VALS, 25 MG OF HYDR AND 10 MGOF AMLO
     Route: 048
     Dates: start: 20100517, end: 20101119
  4. VASODILATORS USED IN CARDIAC DISEASES [Concomitant]
     Dosage: UNK UKN, UNK
  5. DIGIMERCK [Concomitant]
     Dosage: 1 DF, QD
     Dates: start: 20100415
  6. RAMIPRIL [Concomitant]
     Indication: CARDIAC FAILURE
     Dosage: 1 DF, QD
  7. INSUMAN COMB 25 [Concomitant]
     Indication: DIABETES MELLITUS
     Dosage: 20 IU, DAILY
  8. FUROSEMIDE [Concomitant]
     Dosage: 2 DF, BID
     Dates: start: 20110106
  9. EXFORGE [Suspect]
     Indication: HYPERTENSION
     Dosage: 150MG OF ALIS AND 12.5MG OF PER DAY
     Route: 048
     Dates: start: 20081222, end: 20100517
  10. TORSEMIDE [Concomitant]
     Dosage: 2 DF, BID
     Dates: start: 20100312, end: 20110106
  11. EXFORGE HCT [Suspect]
     Indication: HYPERTENSION
     Dosage: 160MG OF VALS AND 10 MG OF AMLO
     Route: 048
     Dates: start: 20100517, end: 20101119
  12. STATINS [Concomitant]
     Dosage: UNK UKN, UNK

REACTIONS (2)
  - PNEUMONIA ASPIRATION [None]
  - CARDIAC FAILURE [None]
